FAERS Safety Report 10378763 (Version 1)
Quarter: 2014Q3

REPORT INFORMATION
  Report Type: Spontaneous
  Country: US (occurrence: US)
  Receive Date: 20140812
  Receipt Date: 20140812
  Transmission Date: 20150326
  Serious: No
  Sender: FDA-Public Use
  Company Number: US-009507513-1408USA006338

PATIENT
  Sex: Female

DRUGS (3)
  1. PROZAC [Concomitant]
     Active Substance: FLUOXETINE HYDROCHLORIDE
     Indication: DEPRESSION
  2. KLONOPIN [Concomitant]
     Active Substance: CLONAZEPAM
     Indication: DEPRESSION
  3. CLARINEX [Suspect]
     Active Substance: DESLORATADINE
     Route: 055

REACTIONS (10)
  - Glaucoma [Unknown]
  - Sinus disorder [Unknown]
  - Anxiety [Unknown]
  - Knee operation [Unknown]
  - Hypertension [Unknown]
  - Stress [Unknown]
  - Blood glucose increased [Unknown]
  - Adverse event [Unknown]
  - Incorrect route of drug administration [Unknown]
  - Glaucoma surgery [Unknown]
